FAERS Safety Report 9509587 (Version 2)
Quarter: 2013Q3

REPORT INFORMATION
  Report Type: Spontaneous
  Country: US (occurrence: US)
  Receive Date: 20130909
  Receipt Date: 20130909
  Transmission Date: 20140515
  Serious: No
  Sender: FDA-Public Use
  Company Number: US-BRISTOL-MYERS SQUIBB COMPANY-19018589

PATIENT
  Age: 61 Year
  Sex: Female
  Weight: 56 kg

DRUGS (12)
  1. ABILIFY [Suspect]
     Dosage: ITS INCREASE 10MG DAILY
  2. CYMBALTA [Concomitant]
  3. KLONOPIN [Concomitant]
     Dosage: TABLETS
  4. AMBIEN [Concomitant]
  5. LEVOTHYROXINE [Concomitant]
  6. PRAVACHOL [Concomitant]
  7. PRAVACHOL [Concomitant]
  8. LORAZEPAM [Concomitant]
     Indication: PANIC ATTACK
  9. MULTIVITAMINS [Concomitant]
  10. CITRACAL [Concomitant]
  11. CENTRUM SILVER [Concomitant]
  12. VITAMIN D [Concomitant]
     Dosage: 1 DF : 2000 UNIT NOS

REACTIONS (2)
  - Drug ineffective [Unknown]
  - Weight increased [Unknown]
